FAERS Safety Report 14407825 (Version 2)
Quarter: 2018Q1

REPORT INFORMATION
  Report Type: Spontaneous
  Country: US (occurrence: US)
  Receive Date: 20180118
  Receipt Date: 20180202
  Transmission Date: 20180509
  Serious: Yes (Other)
  Sender: FDA-Public Use
  Company Number: US-SAOL THERAPEUTICS-2018SAO00019

PATIENT
  Sex: Male
  Weight: 86.17 kg

DRUGS (1)
  1. GABLOFEN [Suspect]
     Active Substance: BACLOFEN
     Dosage: 74 ?G, \DAY
     Route: 037

REACTIONS (5)
  - Muscle spasticity [Unknown]
  - Therapeutic response changed [Unknown]
  - Hypotonia [Unknown]
  - Urinary tract infection [Recovered/Resolved]
  - Muscle tightness [Unknown]

NARRATIVE: CASE EVENT DATE: 201712
